FAERS Safety Report 12482523 (Version 2)
Quarter: 2016Q3

REPORT INFORMATION
  Report Type: Spontaneous
  Country: TR (occurrence: TR)
  Receive Date: 20160620
  Receipt Date: 20160711
  Transmission Date: 20161109
  Serious: Yes (Death, Other)
  Sender: FDA-Public Use
  Company Number: TR-CELGENEUS-TUR-2016021946

PATIENT
  Age: 74 Year
  Sex: Male

DRUGS (5)
  1. POMALIDOMIDE [Suspect]
     Active Substance: POMALIDOMIDE
     Indication: PLASMA CELL MYELOMA
     Dosage: 4
     Route: 048
     Dates: start: 201507, end: 20160127
  2. FUROSEMIDE. [Concomitant]
     Active Substance: FUROSEMIDE
     Indication: CARDIAC FAILURE
     Dosage: .5 MILLIGRAM
     Route: 065
     Dates: start: 20151226, end: 20160127
  3. ENOXAPARINA SODIUM [Concomitant]
     Indication: EMBOLISM
     Dosage: 11.4286 GRAM
     Route: 065
     Dates: start: 20150813, end: 20160127
  4. TRANDOLAPRILUM [Concomitant]
     Indication: CARDIAC FAILURE
     Dosage: 5 MILLIGRAM
     Route: 065
     Dates: start: 20151226, end: 20160127
  5. BISOPROLOL FUMARATE. [Concomitant]
     Active Substance: BISOPROLOL FUMARATE
     Indication: CARDIAC FAILURE
     Route: 065
     Dates: start: 20151226, end: 20160127

REACTIONS (1)
  - Cerebral infarction [Fatal]

NARRATIVE: CASE EVENT DATE: 20160126
